FAERS Safety Report 13401265 (Version 3)
Quarter: 2018Q1

REPORT INFORMATION
  Report Type: Spontaneous
  Country: IT (occurrence: IT)
  Receive Date: 20170404
  Receipt Date: 20180312
  Transmission Date: 20180508
  Serious: Yes (Other)
  Sender: FDA-Public Use
  Company Number: IT-SA-2017SA056435

PATIENT
  Age: 82 Year
  Sex: Female

DRUGS (1)
  1. SOLOSA [Suspect]
     Active Substance: GLIMEPIRIDE
     Route: 048

REACTIONS (3)
  - Hypoglycaemia [Unknown]
  - Aphasia [Unknown]
  - Sopor [Unknown]

NARRATIVE: CASE EVENT DATE: 20170124
